FAERS Safety Report 9913705 (Version 1)
Quarter: 2014Q1

REPORT INFORMATION
  Report Type: Spontaneous
  Country: FR (occurrence: FR)
  Receive Date: 20140220
  Receipt Date: 20140220
  Transmission Date: 20141002
  Serious: Yes (Hospitalization, Other)
  Sender: FDA-Public Use
  Company Number: FR-BRISTOL-MYERS SQUIBB COMPANY-20183372

PATIENT
  Age: 86 Year
  Sex: Female

DRUGS (14)
  1. COUMADIN TABS [Suspect]
     Dosage: RECHALLENGED AT 1 MG PER DAY?DOSE RAPIDLY INCREASED AT 2 MG.
     Route: 048
  2. PARACETAMOL [Interacting]
  3. KARDEGIC [Interacting]
     Route: 048
  4. CRESTOR [Interacting]
     Route: 048
  5. ALLOPURINOL [Interacting]
     Route: 048
  6. APROVEL [Concomitant]
  7. PANTOPRAZOLE [Concomitant]
  8. FUROSEMIDE [Concomitant]
  9. AMLODIPINE [Concomitant]
  10. KALEORID [Concomitant]
     Dosage: LP.
  11. SERETIDE [Concomitant]
     Dosage: 1 DF = 250/25.
  12. ATROVENT [Concomitant]
  13. OXYCONTIN [Concomitant]
  14. VITAMIN K [Concomitant]

REACTIONS (5)
  - Haematoma [Recovered/Resolved]
  - Drug interaction [Unknown]
  - International normalised ratio increased [Unknown]
  - Haemoglobin decreased [Unknown]
  - Renal failure acute [Unknown]
